FAERS Safety Report 10404195 (Version 1)
Quarter: 2014Q1

REPORT INFORMATION
  Report Type: Spontaneous
  Country: US (occurrence: None)
  Receive Date: 20131226
  Receipt Date: 20131226
  Transmission Date: 20141002
  Serious: Yes (Other)
  Sender: FDA-Public Use
  Company Number: PHEH2012US012072

PATIENT
  Sex: Female

DRUGS (1)
  1. DIOVAN (VALSARTAN) [Suspect]

REACTIONS (1)
  - Blood pressure increased [None]
